FAERS Safety Report 25502006 (Version 2)
Quarter: 2025Q3

REPORT INFORMATION
  Report Type: Report from Study
  Country: US (occurrence: US)
  Receive Date: 20250702
  Receipt Date: 20250708
  Transmission Date: 20251020
  Serious: No
  Sender: ABBVIE
  Company Number: US-ABBVIE-6347925

PATIENT
  Age: 63 Year
  Sex: Female
  Weight: 62.142 kg

DRUGS (2)
  1. RINVOQ [Suspect]
     Active Substance: UPADACITINIB
     Indication: Colitis ulcerative
     Dosage: STRENGTH UNIT : 15 MILLIGRAM
     Route: 048
     Dates: start: 2024
  2. CANASA [Concomitant]
     Active Substance: MESALAMINE
     Indication: Intestinal anastomosis

REACTIONS (5)
  - Skin fissures [Recovered/Resolved]
  - Pain of skin [Recovered/Resolved]
  - Impaired healing [Recovered/Resolved]
  - Skin laceration [Recovered/Resolved]
  - Skin atrophy [Recovered/Resolved]

NARRATIVE: CASE EVENT DATE: 20250614
